FAERS Safety Report 23737997 (Version 2)
Quarter: 2024Q2

REPORT INFORMATION
  Report Type: Spontaneous
  Country: US (occurrence: US)
  Receive Date: 20240412
  Receipt Date: 20240614
  Transmission Date: 20240716
  Serious: Yes (Other)
  Sender: FDA-Public Use
  Company Number: US-ABBVIE-5714775

PATIENT
  Age: 51 Year
  Sex: Male
  Weight: 54 kg

DRUGS (8)
  1. RINVOQ [Suspect]
     Active Substance: UPADACITINIB
     Indication: Crohn^s disease
     Dosage: FORM STRENGTH: 45 MILLIGRAM?LAST ADMIN DATE- 2024
     Route: 048
     Dates: start: 20240223, end: 20240408
  2. RINVOQ [Suspect]
     Active Substance: UPADACITINIB
     Indication: Crohn^s disease
     Dosage: RINVOQ 45 MG TABLET EXTENDED?RELEASE 24 HOUR 45 MG ORALLY ONCE A DAY. FIRST ADMIN DATE WAS 2024
     Route: 048
     Dates: end: 20240422
  3. RINVOQ [Suspect]
     Active Substance: UPADACITINIB
     Indication: Crohn^s disease
     Dosage: RINVOQ 45 MG TABLET EXTENDED?RELEASE 24 HOUR 45 MG ORALLY ONCE A DAY.FIRST ADMIN DATE WAS 2024
     Route: 048
     Dates: end: 20240510
  4. RINVOQ [Suspect]
     Active Substance: UPADACITINIB
     Indication: Crohn^s disease
     Dosage: RINVOQ 3O MG TABLET EXTENDED?RELEASE 24 HOUR 30 MG ORALLY ONCE A DAY?FIRST ADMIN DATE WAS 2024
     Dates: end: 20240310
  5. PREDNISONE [Suspect]
     Active Substance: PREDNISONE
     Indication: Crohn^s disease
     Dosage: 10 MG TABLET 4 TABLETS ORALLY ONCE A DAY ,START DATE 2024
     Route: 048
     Dates: end: 20240329
  6. VITAMIN B12 [Concomitant]
     Active Substance: CYANOCOBALAMIN
     Indication: Product used for unknown indication
     Dosage: 1000 MCG/ML INJECTION 1 ML IM MONTHLY
  7. VITAMIN D3 [Concomitant]
     Active Substance: CHOLECALCIFEROL
     Indication: Product used for unknown indication
     Dosage: 3 1.25 MG (50000 UT)?CAPSULE 1 CAPSULE ORALLY ONCE A WEEK
  8. TRIAMCINOLONE ACETONIDE [Concomitant]
     Active Substance: TRIAMCINOLONE ACETONIDE
     Indication: Product used for unknown indication
     Dosage: TRIAMCINOLONE ACETONIDE 0.1 %?OINTMENT 1 APPLICATION TO AFFECTED AREAS?OF TRUNK AND EXTREMITIES E...

REACTIONS (28)
  - Deep vein thrombosis [Recovering/Resolving]
  - Weight decreased [Unknown]
  - Thrombosis [Unknown]
  - Peripheral swelling [Recovering/Resolving]
  - Night sweats [Recovering/Resolving]
  - Ileal stenosis [Unknown]
  - Fatigue [Unknown]
  - Cyst [Unknown]
  - Iron deficiency [Unknown]
  - Small intestinal obstruction [Unknown]
  - Enteritis [Unknown]
  - Duodenitis [Unknown]
  - Intestinal anastomosis [Unknown]
  - Feeling abnormal [Unknown]
  - Irritability [Unknown]
  - Haemangioma [Unknown]
  - Muscle spasms [Recovering/Resolving]
  - Fibrosis [Unknown]
  - Hiatus hernia [Unknown]
  - Large intestine erosion [Unknown]
  - Gastrointestinal mucosal disorder [Unknown]
  - Colitis [Unknown]
  - Large intestinal ulcer [Unknown]
  - Large intestinal stenosis [Unknown]
  - Tuberculin test positive [Recovering/Resolving]
  - Diarrhoea [Unknown]
  - Hepatic steatosis [Unknown]
  - Ileal ulcer [Unknown]

NARRATIVE: CASE EVENT DATE: 20240401
